FAERS Safety Report 5963447-8 (Version None)
Quarter: 2008Q4

REPORT INFORMATION
  Report Type: 
  Country: None (occurrence: None)
  Receive Date: 20081121
  Receipt Date: 20081121
  Transmission Date: 20090506
  Serious: Yes (Hospitalization)
  Sender: FDA-Public Use
  Company Number: None

PATIENT
  Sex: Male
  Weight: 60 kg

DRUGS (2)
  1. OXALIPLATIN [Suspect]
     Indication: PROSTATE CANCER
     Dosage: 95 MG/M^2 Q 21 DAYS IV
     Route: 042
     Dates: end: 20080930
  2. POMETREXED [Suspect]
     Indication: PROSTATE CANCER
     Dosage: 375 MG/M^2 Q 21 DAYS IV
     Route: 042
     Dates: end: 20080930

REACTIONS (4)
  - ANAEMIA [None]
  - CATHETER RELATED INFECTION [None]
  - CONFUSIONAL STATE [None]
  - STAPHYLOCOCCAL SEPSIS [None]
